FAERS Safety Report 25490406 (Version 4)
Quarter: 2025Q4

REPORT INFORMATION
  Report Type: Spontaneous
  Country: US (occurrence: US)
  Receive Date: 20250628
  Receipt Date: 20251111
  Transmission Date: 20260117
  Serious: No
  Sender: SANOFI AVENTIS
  Company Number: US-SA-2025SA177380

PATIENT
  Age: 12 Year
  Sex: Female
  Weight: 56.82 kg

DRUGS (2)
  1. NEXVIAZYME [Suspect]
     Active Substance: AVALGLUCOSIDASE ALFA-NGPT
     Indication: Glycogen storage disease type II
     Dosage: 2200 MG, QOW
     Route: 042
     Dates: start: 202505, end: 2025
  2. NEXVIAZYME [Suspect]
     Active Substance: AVALGLUCOSIDASE ALFA-NGPT
     Dosage: 2200 MG, QOW
     Route: 042
     Dates: start: 2025

REACTIONS (3)
  - Weight increased [Not Recovered/Not Resolved]
  - Pyrexia [Unknown]
  - Pain [Unknown]

NARRATIVE: CASE EVENT DATE: 20250101
